FAERS Safety Report 18630523 (Version 1)
Quarter: 2020Q4

REPORT INFORMATION
  Report Type: Report from Study
  Country: None (occurrence: US)
  Receive Date: 20201218
  Receipt Date: 20201218
  Transmission Date: 20210114
  Serious: Yes (Other)
  Sender: FDA-Public Use
  Company Number: US-ABBVIE-20K-163-3629741-00

PATIENT
  Age: 57 Year
  Sex: Female
  Weight: 101.7 kg

DRUGS (7)
  1. HUMIRA [Suspect]
     Active Substance: ADALIMUMAB
     Indication: CROHN^S DISEASE
     Route: 058
     Dates: start: 2019, end: 202011
  2. SODIUM BICARBONATE. [Concomitant]
     Active Substance: SODIUM BICARBONATE
     Indication: PRODUCT USED FOR UNKNOWN INDICATION
  3. HUMIRA [Suspect]
     Active Substance: ADALIMUMAB
     Route: 058
     Dates: start: 20201112
  4. PNEUMOCOCCAL VACCINE POLYVALENT NOS [Suspect]
     Active Substance: PNEUMOCOCCAL VACCINE POLYVALENT
     Indication: PRODUCT USED FOR UNKNOWN INDICATION
     Route: 065
  5. CALCIUM BICARBONATE [Concomitant]
     Active Substance: CALCIUM BICARBONATE
     Indication: PRODUCT USED FOR UNKNOWN INDICATION
  6. INFLUENZA VACCINE [Suspect]
     Active Substance: INFLUENZA VIRUS VACCINE
     Indication: PRODUCT USED FOR UNKNOWN INDICATION
     Route: 065
  7. VITAMIN D3 [Concomitant]
     Active Substance: CHOLECALCIFEROL
     Indication: PRODUCT USED FOR UNKNOWN INDICATION

REACTIONS (10)
  - Fistula [Recovered/Resolved]
  - Anorectal discomfort [Not Recovered/Not Resolved]
  - Mental disorder [Unknown]
  - Contraindicated product administered [Unknown]
  - Sleep disorder [Unknown]
  - Stoma creation [Unknown]
  - Contraindicated product administered [Unknown]
  - Rash [Not Recovered/Not Resolved]
  - Vaginal fistula [Not Recovered/Not Resolved]
  - Stomal hernia [Unknown]

NARRATIVE: CASE EVENT DATE: 20201007
